FAERS Safety Report 14675278 (Version 2)
Quarter: 2018Q2

REPORT INFORMATION
  Report Type: Spontaneous
  Country: IL (occurrence: IL)
  Receive Date: 20180323
  Receipt Date: 20180403
  Transmission Date: 20180711
  Serious: Yes (Hospitalization)
  Sender: FDA-Public Use
  Company Number: IL-FERRINGPH-2018FE01272

PATIENT

DRUGS (3)
  1. COLCHICINE. [Concomitant]
     Active Substance: COLCHICINE
     Indication: FAMILIAL MEDITERRANEAN FEVER
     Dosage: 3 DF, DAILY
     Route: 065
  2. NAXIN [Concomitant]
     Active Substance: NAPROXEN
     Indication: FAMILIAL MEDITERRANEAN FEVER
     Dosage: IN ACUTE PAIN
  3. PICO-SALAX [Suspect]
     Active Substance: ANHYDROUS CITRIC ACID\MAGNESIUM OXIDE\SODIUM PICOSULFATE
     Indication: BOWEL PREPARATION
     Dosage: 2 DF WERE ADMINISTERED
     Route: 065
     Dates: start: 20180306, end: 20180306

REACTIONS (1)
  - Acute kidney injury [Unknown]

NARRATIVE: CASE EVENT DATE: 20180306
